FAERS Safety Report 11105746 (Version 1)
Quarter: 2015Q2

REPORT INFORMATION
  Report Type: Spontaneous
  Country: US (occurrence: None)
  Receive Date: 20150508
  Receipt Date: 20150508
  Transmission Date: 20150821
  Serious: Yes (Life-Threatening, Other)
  Sender: FDA-Public Use
  Company Number: None

PATIENT
  Age: 65 Year
  Sex: Female
  Weight: 85.28 kg

DRUGS (14)
  1. MUPIROCIN CREAM [Concomitant]
     Active Substance: MUPIROCIN
  2. VALSARTAN HCTZ [Suspect]
     Active Substance: HYDROCHLOROTHIAZIDE\VALSARTAN
     Indication: HYPERTENSION
     Dosage: 1 PILL ONCE DAILY TAKEN BY MOUTH
     Route: 048
     Dates: start: 20150414, end: 20150504
  3. NEXIUM [Concomitant]
     Active Substance: ESOMEPRAZOLE MAGNESIUM
  4. THREATEARS EYE DROPS [Concomitant]
  5. METOPROLOL TARTRATE. [Concomitant]
     Active Substance: METOPROLOL TARTRATE
  6. CRESTOR [Concomitant]
     Active Substance: ROSUVASTATIN CALCIUM
  7. ALPRAZOLAM. [Concomitant]
     Active Substance: ALPRAZOLAM
  8. CENTRUM SILVER FOR WOMEN MULTI-VITAMIN [Concomitant]
  9. ACYCLOVIR. [Concomitant]
     Active Substance: ACYCLOVIR
  10. ASPIRIN. [Concomitant]
     Active Substance: ASPIRIN
  11. FLAXSEED [Concomitant]
     Active Substance: FLAX SEED
  12. COENZYME Q10 [Concomitant]
     Active Substance: UBIDECARENONE
  13. L-LYSINE [Concomitant]
     Active Substance: LYSINE
  14. VITAMN C [Concomitant]

REACTIONS (17)
  - Blood pressure fluctuation [None]
  - Palpitations [None]
  - Product substitution issue [None]
  - Product quality issue [None]
  - Tinnitus [None]
  - Nausea [None]
  - Paraesthesia [None]
  - Dyspnoea [None]
  - Angina pectoris [None]
  - Asthenia [None]
  - Feeling abnormal [None]
  - Hyperhidrosis [None]
  - Anxiety [None]
  - Gastric disorder [None]
  - Discomfort [None]
  - Erythema [None]
  - Hypertension [None]

NARRATIVE: CASE EVENT DATE: 20150424
